FAERS Safety Report 7111764-0 (Version None)
Quarter: 2010Q4

REPORT INFORMATION
  Report Type: 
  Country: None (occurrence: None)
  Receive Date: 20101118
  Receipt Date: 20101106
  Transmission Date: 20110411
  Serious: Yes (Hospitalization)
  Sender: FDA-Public Use
  Company Number: US-ELI_LILLY_AND_COMPANY-US201001004797

PATIENT
  Age: 85 Year
  Sex: Male

DRUGS (2)
  1. FORTEO [Suspect]
     Indication: OSTEOPOROSIS
  2. PLAQUENIL [Concomitant]

REACTIONS (4)
  - DECREASED APPETITE [None]
  - JOINT SWELLING [None]
  - LUMBAR VERTEBRAL FRACTURE [None]
  - NAUSEA [None]
